FAERS Safety Report 9506064 (Version 2)
Quarter: 2014Q1

REPORT INFORMATION
  Report Type: Spontaneous
  Country: US (occurrence: None)
  Receive Date: 20130305
  Receipt Date: 20140306
  Transmission Date: 20141002
  Serious: Yes (Other)
  Sender: FDA-Public Use
  Company Number: 163-21880-12021972

PATIENT
  Age: 58 Year
  Sex: Male
  Weight: 124 kg

DRUGS (12)
  1. REVLIMID [Suspect]
     Indication: PLASMA CELL MYELOMA
     Dosage: 25 MG, 21 IN 21 D, PO
     Route: 048
     Dates: start: 20120116
  2. DEXAMETHASONE (DEXAMETHASONE) [Concomitant]
  3. METOPROLOL TARTRATE (METOPROLOL TARTRATE) [Concomitant]
  4. ASPIRIN (ACETYLSALICYLIC ACID) [Concomitant]
  5. CARVEDILOL (CARVEDILOL) [Concomitant]
  6. XARELTO (RIVAROXABAN) [Concomitant]
  7. CARDIZEM (DILTIAZEM HYDROCHLORIDE) (TABLETS) [Concomitant]
  8. AZOPT (BRINZOLAMIDE) (EYE DROPS) [Concomitant]
  9. METFORMIN HCL (METFORMIN HYDROCHLORIDE) [Concomitant]
  10. CHLORHEXIDINE (CHLORHEXIDINE) [Concomitant]
  11. LEVEMIR (INSULIN DETEMIR) [Concomitant]
  12. PENICILLIN VK (PHENOXYMETHYLPENICILLIN POTASSIUM) [Concomitant]

REACTIONS (1)
  - Deep vein thrombosis [None]
